FAERS Safety Report 5663256-3 (Version None)
Quarter: 2008Q1

REPORT INFORMATION
  Report Type: 
  Country: None (occurrence: None)
  Receive Date: 20080313
  Receipt Date: 20080303
  Transmission Date: 20080703
  Serious: Yes (Other)
  Sender: FDA-Public Use
  Company Number: US-PFIZER INC-2008020121

PATIENT
  Sex: Female
  Weight: 63.5 kg

DRUGS (2)
  1. LIPITOR [Suspect]
     Indication: BLOOD CHOLESTEROL INCREASED
  2. PRILOSEC [Concomitant]
     Indication: DYSPEPSIA

REACTIONS (1)
  - CARDIAC OPERATION [None]
